FAERS Safety Report 10071530 (Version 1)
Quarter: 2014Q2

REPORT INFORMATION
  Report Type: Spontaneous
  Country: FR (occurrence: FR)
  Receive Date: 20140410
  Receipt Date: 20140410
  Transmission Date: 20141212
  Serious: Yes (Hospitalization)
  Sender: FDA-Public Use
  Company Number: PHHY2014FR041387

PATIENT
  Age: 68 Year
  Sex: Male
  Weight: 65.7 kg

DRUGS (11)
  1. PACLITAXEL SANDOZ [Suspect]
     Dosage: 6 MG/ML, UNK
     Route: 042
     Dates: start: 20140204
  2. CARBOPLATIN HOSPIRA [Suspect]
     Route: 042
     Dates: start: 10140204
  3. ROCEPHINE [Suspect]
     Dosage: 1 GBQ, QD
     Dates: start: 20140209, end: 20140214
  4. PREVISCAN [Concomitant]
     Dosage: 20 MG, UNK
     Route: 048
     Dates: end: 20140207
  5. HEMIGOXINE NATIVELLE [Concomitant]
     Dosage: 1 DF, QD
     Route: 048
  6. TRANSIPEG//MACROGOL [Concomitant]
     Dosage: 1 DF, PRN
     Route: 048
  7. SKENAN [Concomitant]
     Dosage: 30 MG, UNK
     Route: 048
     Dates: end: 20140212
  8. DOLIPRANE [Concomitant]
     Dosage: 500 MG, PRN
     Route: 048
  9. VENTOLINE [Concomitant]
  10. BECOTIDE [Concomitant]
  11. SEREVENT [Concomitant]

REACTIONS (3)
  - Renal tubular necrosis [Recovering/Resolving]
  - Purpura [Recovered/Resolved]
  - Rash maculo-papular [Recovered/Resolved]
